FAERS Safety Report 4894735-4 (Version None)
Quarter: 2006Q1

REPORT INFORMATION
  Report Type: 
  Country: None (occurrence: None)
  Receive Date: 20060127
  Receipt Date: 20060127
  Transmission Date: 20060701
  Serious: Yes (Hospitalization)
  Sender: FDA-Public Use
  Company Number: None

PATIENT
  Age: 71 Year
  Sex: Male

DRUGS (15)
  1. WARFARIN [Suspect]
     Indication: CEREBROVASCULAR ACCIDENT
     Dosage: 5MG PO QHS EXCEPT 3.375 TU/TH
     Route: 048
  2. WARFARIN [Suspect]
     Indication: PERIPHERAL VASCULAR DISORDER
     Dosage: 5MG PO QHS EXCEPT 3.375 TU/TH
     Route: 048
  3. AMOXICILLIN + CLAVULANATE POTASSIUM [Suspect]
     Indication: LOCALISED INFECTION
     Dosage: 1 TAB PO BID
     Route: 048
  4. CHLORPHENIRAMINE MALEATE [Concomitant]
  5. CLOPIDOGREL BISULFATE [Concomitant]
  6. ENALAPRIL MALEATE [Concomitant]
  7. FELODIPINE [Concomitant]
  8. FERROUS GLUCONATE [Concomitant]
  9. FLUNISOLIDE [Concomitant]
  10. FUROSEMIDE [Concomitant]
  11. GABAPENTIN [Concomitant]
  12. GEMFIBROZIL [Concomitant]
  13. GUAIFENESIN DM [Concomitant]
  14. HYDROCHLOROTHIAZIDE [Concomitant]
  15. METFORMIN HCL [Concomitant]

REACTIONS (5)
  - GASTROINTESTINAL HAEMORRHAGE [None]
  - INTENTIONAL DRUG MISUSE [None]
  - INTERNATIONAL NORMALISED RATIO DECREASED [None]
  - INTERNATIONAL NORMALISED RATIO INCREASED [None]
  - TREATMENT NONCOMPLIANCE [None]
